FAERS Safety Report 10765598 (Version 1)
Quarter: 2015Q1

REPORT INFORMATION
  Report Type: Spontaneous
  Country: US (occurrence: US)
  Receive Date: 20150205
  Receipt Date: 20150205
  Transmission Date: 20150721
  Serious: Yes (Other)
  Sender: FDA-Public Use
  Company Number: US-ROCHE-1532145

PATIENT
  Sex: Female

DRUGS (1)
  1. KLONOPIN [Suspect]
     Active Substance: CLONAZEPAM
     Indication: SEDATION
     Route: 065
     Dates: start: 2004, end: 2012

REACTIONS (2)
  - Neoplasm malignant [Unknown]
  - Haemorrhage [Unknown]

NARRATIVE: CASE EVENT DATE: 2004
